FAERS Safety Report 15704779 (Version 3)
Quarter: 2019Q4

REPORT INFORMATION
  Report Type: Spontaneous
  Country: CA (occurrence: CA)
  Receive Date: 20181210
  Receipt Date: 20191017
  Transmission Date: 20200122
  Serious: Yes (Other)
  Sender: FDA-Public Use
  Company Number: CA-TEVA-2018-CA-986271

PATIENT
  Age: 89 Year
  Sex: Female

DRUGS (1)
  1. ZOLEDRONIC ACID INJECTION [Suspect]
     Active Substance: ZOLEDRONIC ACID
     Indication: OSTEOPOROSIS
     Route: 042

REACTIONS (2)
  - Hypertension [Unknown]
  - Headache [Unknown]
